FAERS Safety Report 7628573-6 (Version None)
Quarter: 2011Q3

REPORT INFORMATION
  Report Type: 
  Country: None (occurrence: None)
  Receive Date: 20110711
  Receipt Date: 20110627
  Transmission Date: 20111222
  Serious: Yes (Other)
  Sender: FDA-Public Use
  Company Number: AEUSA201100163

PATIENT
  Age: 57 Year
  Sex: Female

DRUGS (8)
  1. PREDNISONE [Concomitant]
  2. PREVACID [Concomitant]
  3. LEVOXYL [Concomitant]
  4. GAMUNEX [Suspect]
     Indication: IMMUNODEFICIENCY COMMON VARIABLE
     Dosage: 15 GM; 1X; IV
     Route: 042
     Dates: start: 20040101, end: 20110501
  5. BENADRYL [Concomitant]
  6. LASIX [Concomitant]
  7. COZAAR [Concomitant]
  8. GLUCOPHAGE [Concomitant]

REACTIONS (4)
  - HEADACHE [None]
  - DYSPNOEA [None]
  - BLOOD PRESSURE INCREASED [None]
  - CYANOSIS [None]
